FAERS Safety Report 6177110-4 (Version None)
Quarter: 2009Q2

REPORT INFORMATION
  Report Type: 
  Country: None (occurrence: None)
  Receive Date: 20090430
  Receipt Date: 20090430
  Transmission Date: 20091009
  Serious: Yes (Hospitalization, Other)
  Sender: FDA-Public Use
  Company Number: None

PATIENT
  Age: 39 Year
  Sex: Female

DRUGS (2)
  1. ATENOLOL [Suspect]
     Indication: SUPRAVENTRICULAR TACHYCARDIA
     Dosage: 50MG 2 A DAY
     Dates: start: 20000301, end: 20081201
  2. VERAPAMIL [Suspect]
     Indication: SUPRAVENTRICULAR TACHYCARDIA
     Dosage: 240MG 1 A DAY
     Dates: start: 20081201, end: 20081201

REACTIONS (4)
  - ASTHENIA [None]
  - CHILLS [None]
  - HYPERHIDROSIS [None]
  - LYME DISEASE [None]
